FAERS Safety Report 22100718 (Version 3)
Quarter: 2025Q3

REPORT INFORMATION
  Report Type: Report from Study
  Country: EU (occurrence: EU)
  Receive Date: 20230316
  Receipt Date: 20250809
  Transmission Date: 20251021
  Serious: Yes (Other)
  Sender: CELLTRION
  Company Number: EU-CELLTRION INC.-2023DE005428

PATIENT

DRUGS (10)
  1. BEVACIZUMAB [Suspect]
     Active Substance: BEVACIZUMAB
     Indication: Hepatocellular carcinoma
     Dosage: 1230 MILLIGRAM, EVERY 1 MONTH
     Dates: start: 20220921, end: 20221123
  2. ATEZOLIZUMAB [Suspect]
     Active Substance: ATEZOLIZUMAB
     Indication: Hepatocellular carcinoma
     Dosage: MOST RECENT DOSE ON: 23-NOV-2022, 1200MG
     Route: 042
     Dates: start: 20220921, end: 20221123
  3. METAMIZOLE [Concomitant]
     Active Substance: METAMIZOLE
  4. AMPHOTERICIN B [Concomitant]
     Active Substance: AMPHOTERICIN B
     Dates: start: 20230110
  5. PANTOZOL [Concomitant]
     Active Substance: PANTOPRAZOLE SODIUM
  6. AMLODIPINE [Concomitant]
     Active Substance: AMLODIPINE BESYLATE
  7. LACTULOSE [Concomitant]
     Active Substance: LACTULOSE
  8. BISOPROLOL [Concomitant]
     Active Substance: BISOPROLOL
  9. BECLOMETHASONE [Concomitant]
     Active Substance: BECLOMETHASONE
  10. INDACATEROL ACETATE\MOMETASONE FUROATE [Concomitant]
     Active Substance: INDACATEROL ACETATE\MOMETASONE FUROATE

REACTIONS (6)
  - Drug-induced liver injury [Recovering/Resolving]
  - Alanine aminotransferase increased [Recovering/Resolving]
  - Aspartate aminotransferase increased [Recovering/Resolving]
  - Blood bilirubin increased [Recovering/Resolving]
  - Jaundice [Recovering/Resolving]
  - Intentional product use issue [Unknown]

NARRATIVE: CASE EVENT DATE: 20221102
